FAERS Safety Report 11967406 (Version 2)
Quarter: 2016Q1

REPORT INFORMATION
  Report Type: Spontaneous
  Country: US (occurrence: US)
  Receive Date: 20160127
  Receipt Date: 20160210
  Transmission Date: 20160526
  Serious: Yes (Other)
  Sender: FDA-Public Use
  Company Number: US-PFIZER INC-2015478456

PATIENT
  Sex: Male

DRUGS (1)
  1. ADVIL [Suspect]
     Active Substance: IBUPROFEN
     Dosage: UNK

REACTIONS (9)
  - Palpitations [Unknown]
  - Drug abuse [Unknown]
  - Nasal discomfort [Unknown]
  - Dyspnoea [Unknown]
  - Lip discolouration [Unknown]
  - Vertigo [Unknown]
  - Chapped lips [Unknown]
  - Arthralgia [Unknown]
  - Dizziness [Unknown]
